FAERS Safety Report 16135899 (Version 2)
Quarter: 2019Q2

REPORT INFORMATION
  Report Type: Spontaneous
  Country: BR (occurrence: BR)
  Receive Date: 20190329
  Receipt Date: 20190401
  Transmission Date: 20190711
  Serious: Yes (Other)
  Sender: FDA-Public Use
  Company Number: BR-JNJFOC-20190335644

PATIENT
  Age: 35 Year
  Sex: Female
  Weight: 60 kg

DRUGS (3)
  1. INFLIXIMAB, RECOMBINANT [Suspect]
     Active Substance: INFLIXIMAB
     Indication: CROHN^S DISEASE
     Route: 042
     Dates: start: 20130618, end: 201403
  2. INFLIXIMAB, RECOMBINANT [Suspect]
     Active Substance: INFLIXIMAB
     Indication: CROHN^S DISEASE
     Route: 042
     Dates: start: 201412, end: 201612
  3. AZATHIOPRINE. [Suspect]
     Active Substance: AZATHIOPRINE
     Indication: CROHN^S DISEASE
     Route: 065
     Dates: start: 2013, end: 201707

REACTIONS (13)
  - Psoriatic arthropathy [Unknown]
  - Therapeutic response decreased [Unknown]
  - Synovitis [Unknown]
  - Kidney angiomyolipoma [Unknown]
  - Lupus-like syndrome [Unknown]
  - Chondropathy [Unknown]
  - Rectal ulcer [Unknown]
  - Rectal polyp [Unknown]
  - Tendon disorder [Unknown]
  - Vasculitis [Unknown]
  - Crohn^s disease [Unknown]
  - Bone cyst [Unknown]
  - Psoriasis [Unknown]

NARRATIVE: CASE EVENT DATE: 20131218
